FAERS Safety Report 23839494 (Version 1)
Quarter: 2024Q2

REPORT INFORMATION
  Report Type: Spontaneous
  Country: CN (occurrence: None)
  Receive Date: 20240510
  Receipt Date: 20240510
  Transmission Date: 20240716
  Serious: Yes (Other)
  Sender: FDA-Public Use
  Company Number: 2024A103862

PATIENT
  Age: 60 Year
  Sex: Male

DRUGS (1)
  1. GEFITINIB [Suspect]
     Active Substance: GEFITINIB
     Indication: Lung neoplasm malignant
     Route: 048

REACTIONS (5)
  - Metastasis [Unknown]
  - Malignant neoplasm progression [Unknown]
  - Condition aggravated [Unknown]
  - EGFR gene mutation [Unknown]
  - Drug resistance [Unknown]
